FAERS Safety Report 12705399 (Version 3)
Quarter: 2017Q2

REPORT INFORMATION
  Report Type: Spontaneous
  Country: FR (occurrence: FR)
  Receive Date: 20160901
  Receipt Date: 20170404
  Transmission Date: 20170830
  Serious: Yes (Hospitalization)
  Sender: FDA-Public Use
  Company Number: FR-ABBVIE-16K-056-1708669-00

PATIENT
  Age: 67 Year
  Sex: Female
  Weight: 67 kg

DRUGS (11)
  1. HUMIRA [Suspect]
     Active Substance: ADALIMUMAB
     Indication: ANKYLOSING SPONDYLITIS
     Route: 058
     Dates: start: 201503, end: 201602
  2. SERESTA [Concomitant]
     Active Substance: OXAZEPAM
     Indication: ANXIETY
     Dosage: HALF TABLET IN THE MORNING
     Route: 048
  3. DIASEPTYL [Suspect]
     Active Substance: CHLORHEXIDINE
     Indication: DERMATITIS
     Dosage: 2 DAILY APPLICATION
     Route: 061
     Dates: start: 20160314
  4. OESTRODOSE [Concomitant]
     Active Substance: ESTRADIOL
     Indication: HORMONE REPLACEMENT THERAPY
     Route: 062
  5. ORBENINE [Concomitant]
     Active Substance: CLOXACILLIN SODIUM
     Indication: DERMATITIS
     Route: 048
     Dates: start: 20160314
  6. OXYCONTIN [Concomitant]
     Active Substance: OXYCODONE HYDROCHLORIDE
     Indication: ANKYLOSING SPONDYLITIS
     Dosage: AS REQUESTED
     Route: 048
  7. FUCITHALMIC [Concomitant]
     Active Substance: FUSIDIC ACID
     Indication: DERMATITIS
     Route: 047
     Dates: start: 20160314
  8. SEPTIVON (CHLORHEXIDINE GLUCONATE) [Suspect]
     Active Substance: CHLORHEXIDINE GLUCONATE
     Indication: DERMATITIS
     Dosage: 2 DAILY APPLICATION
     Route: 061
     Dates: start: 20160314
  9. SEROPLEX [Concomitant]
     Active Substance: ESCITALOPRAM OXALATE
     Indication: DEPRESSION
     Dosage: 1DF IN THE MORNING
     Route: 048
  10. FUCIDINE [Suspect]
     Active Substance: FUSIDIC ACID
     Indication: DERMATITIS
     Dosage: 1 TO 2 DAILY APPLICATION
     Route: 061
     Dates: start: 20160314
  11. EUTHYRAL [Concomitant]
     Active Substance: LEVOTHYROXINE SODIUM\LIOTHYRONINE SODIUM
     Indication: HYPOTHYROIDISM
     Dosage: HALF TABLET IN THE MORNING
     Route: 048

REACTIONS (6)
  - Dermatitis contact [Recovered/Resolved]
  - Dermatitis psoriasiform [Unknown]
  - Eczema [Unknown]
  - Paradoxical drug reaction [Unknown]
  - Seborrhoeic dermatitis [Unknown]
  - Eczema impetiginous [Unknown]

NARRATIVE: CASE EVENT DATE: 201511
